FAERS Safety Report 7068610-3 (Version None)
Quarter: 2010Q4

REPORT INFORMATION
  Report Type: 
  Country: None (occurrence: None)
  Receive Date: 20101027
  Receipt Date: 20101027
  Transmission Date: 20110411
  Serious: Yes (Hospitalization)
  Sender: FDA-Public Use
  Company Number: None

PATIENT
  Age: 76 Year
  Sex: Male

DRUGS (12)
  1. FUROSEMIDE [Suspect]
     Indication: MUSCLE SPASMS
     Dosage: 40MG DAILY PO
     Route: 048
  2. AGGRENOX [Concomitant]
  3. HYDROCHLOROTHIAZIDE [Concomitant]
  4. SEROQUEL [Concomitant]
  5. NORVASC [Concomitant]
  6. LISINOPRIL [Concomitant]
  7. SIMVASTATIN [Concomitant]
  8. HALOPERIDOL [Concomitant]
  9. QUESTRAN [Concomitant]
  10. MIRTAZAPINE [Concomitant]
  11. BACLOFEN [Concomitant]
  12. LORAZEPAM [Concomitant]

REACTIONS (1)
  - DEHYDRATION [None]
